FAERS Safety Report 20356659 (Version 1)
Quarter: 2022Q1

REPORT INFORMATION
  Report Type: Spontaneous
  Country: US (occurrence: None)
  Receive Date: 20220120
  Receipt Date: 20220120
  Transmission Date: 20220423
  Serious: No
  Sender: FDA-Public Use
  Company Number: None

PATIENT
  Sex: Female

DRUGS (14)
  1. AMBRISENTAN [Suspect]
     Active Substance: AMBRISENTAN
  2. ALENDRONATE [Concomitant]
  3. ASPIRIN CHW [Concomitant]
  4. CALCIUM CAP [Concomitant]
  5. CELEXA TAB [Concomitant]
  6. CYCLOBENZAPR TAB [Concomitant]
  7. DYAZIDE [Concomitant]
  8. ENBREL INJ [Concomitant]
  9. METHOTREXATE TAB [Concomitant]
  10. METOPROL TAR TAB [Concomitant]
  11. MULTIVAMIN [Concomitant]
  12. OMEPRAZOLE [Concomitant]
  13. POTASSIUM POW CHLORIDE [Concomitant]
  14. PRAVASTATIN [Concomitant]
     Active Substance: PRAVASTATIN

REACTIONS (1)
  - COVID-19 [None]
